FAERS Safety Report 5587109-4 (Version None)
Quarter: 2008Q1

REPORT INFORMATION
  Report Type: 
  Country: None (occurrence: None)
  Receive Date: 20080110
  Receipt Date: 20080107
  Transmission Date: 20080703
  Serious: Yes (Hospitalization)
  Sender: FDA-Public Use
  Company Number: B0501396A

PATIENT
  Age: 15 Year
  Sex: Male

DRUGS (3)
  1. LAMOTRIGINE [Suspect]
     Indication: PARTIAL SEIZURES
     Route: 048
     Dates: start: 20070913
  2. DIASTAT [Suspect]
     Dosage: 10MG AS REQUIRED
     Route: 054
     Dates: start: 20071227, end: 20071227
  3. ZANTAC [Concomitant]
     Indication: PROPHYLAXIS

REACTIONS (4)
  - HYPOVENTILATION [None]
  - PARTIAL SEIZURES [None]
  - RESPIRATORY FAILURE [None]
  - TONIC CLONIC MOVEMENTS [None]
